FAERS Safety Report 14607547 (Version 1)
Quarter: 2018Q1

REPORT INFORMATION
  Report Type: Spontaneous
  Country: ES (occurrence: ES)
  Receive Date: 20180307
  Receipt Date: 20180307
  Transmission Date: 20180509
  Serious: Yes (Life-Threatening, Hospitalization)
  Sender: FDA-Public Use
  Company Number: PHHY2018ES037592

PATIENT
  Age: 54 Year
  Sex: Female

DRUGS (3)
  1. METFORMIN [Suspect]
     Active Substance: METFORMIN HYDROCHLORIDE
     Indication: INTENTIONAL OVERDOSE
     Dosage: UNK
     Route: 048
  2. ACTRAPID [Interacting]
     Active Substance: INSULIN HUMAN
     Indication: INTENTIONAL OVERDOSE
     Dosage: UNK
     Route: 058
  3. LEVEMIR [Interacting]
     Active Substance: INSULIN DETEMIR
     Indication: INTENTIONAL OVERDOSE
     Dosage: UNK
     Route: 058

REACTIONS (2)
  - Intentional overdose [Recovered/Resolved]
  - Hypoglycaemic coma [Recovered/Resolved]

NARRATIVE: CASE EVENT DATE: 20160522
